FAERS Safety Report 18470215 (Version 1)
Quarter: 2020Q4

REPORT INFORMATION
  Report Type: Other
  Country: ER (occurrence: ER)
  Receive Date: 20201106
  Receipt Date: 20201106
  Transmission Date: 20210114
  Serious: Yes (Death)
  Sender: FDA-Public Use
  Company Number: ER-AJANTA PHARMA USA INC.-2093657

PATIENT
  Age: 68 Year
  Sex: Female

DRUGS (1)
  1. RANITIDINE (ANDA 209859) [Suspect]
     Active Substance: RANITIDINE
     Indication: PEPTIC ULCER
     Route: 040

REACTIONS (2)
  - Cardiac arrest [Fatal]
  - Product preparation error [Unknown]
